FAERS Safety Report 5318710-0 (Version None)
Quarter: 2007Q2

REPORT INFORMATION
  Report Type: 
  Country: None (occurrence: None)
  Receive Date: 20070503
  Receipt Date: 20070503
  Transmission Date: 20071010
  Serious: Yes (Other)
  Sender: FDA-Public Use
  Company Number: None

PATIENT
  Age: 67 Year
  Sex: Female
  Weight: 122 kg

DRUGS (9)
  1. MOXIFLOXACIN HCL [Suspect]
     Indication: CELLULITIS
     Dosage: 400MG DAILY PO
     Route: 048
     Dates: start: 20070330
  2. MOXIFLOXACIN HCL [Suspect]
     Indication: CELLULITIS
     Dosage: 400MG DAILY PO
     Route: 048
     Dates: start: 20070410
  3. GABAPENTIN [Concomitant]
  4. AMLODIPINE [Concomitant]
  5. LISINOPRIL [Concomitant]
  6. HYDROCHLOROTHIAZIDE [Concomitant]
  7. METFORMIN HCL [Concomitant]
  8. AMILIORIDE [Concomitant]
  9. ULTRACET [Concomitant]

REACTIONS (2)
  - TENDON RUPTURE [None]
  - TENDONITIS [None]
